FAERS Safety Report 8123274-2 (Version None)
Quarter: 2012Q1

REPORT INFORMATION
  Report Type: 
  Country: None (occurrence: None)
  Receive Date: 20120208
  Receipt Date: 20120202
  Transmission Date: 20120608
  Serious: Yes (Congenital Anomaly, Other)
  Sender: FDA-Public Use
  Company Number: US-PFIZER INC-2011258819

PATIENT
  Sex: Male
  Weight: 3.9 kg

DRUGS (3)
  1. ERYTHROMYCIN [Concomitant]
     Dosage: UNK
     Route: 064
     Dates: start: 20050401
  2. ZOLOFT [Suspect]
     Dosage: 30 MG, UNK
     Route: 064
  3. MULTI-VITAMINS [Concomitant]
     Dosage: UNK
     Route: 064
     Dates: start: 20050311

REACTIONS (8)
  - CONGENITAL PULMONARY VALVE ATRESIA [None]
  - SPEECH DISORDER DEVELOPMENTAL [None]
  - MATERNAL EXPOSURE TIMING UNSPECIFIED [None]
  - FAILURE TO THRIVE [None]
  - DEVELOPMENTAL DELAY [None]
  - PATENT DUCTUS ARTERIOSUS [None]
  - VENTRICULAR SEPTAL DEFECT [None]
  - FALLOT'S TETRALOGY [None]
